FAERS Safety Report 10496516 (Version 2)
Quarter: 2014Q4

REPORT INFORMATION
  Report Type: Spontaneous
  Country: US (occurrence: US)
  Receive Date: 20141004
  Receipt Date: 20141017
  Transmission Date: 20150528
  Serious: No
  Sender: FDA-Public Use
  Company Number: US-009507513-1409USA014035

PATIENT
  Age: 87 Year
  Sex: Female

DRUGS (1)
  1. NITRO-DUR [Suspect]
     Active Substance: NITROGLYCERIN
     Dosage: UNK
     Route: 062

REACTIONS (12)
  - Sneezing [Unknown]
  - Affect lability [Not Recovered/Not Resolved]
  - Fatigue [Not Recovered/Not Resolved]
  - Cough [Unknown]
  - Depressed mood [Not Recovered/Not Resolved]
  - Speech disorder [Unknown]
  - Confusional state [Unknown]
  - Drug dose omission [Unknown]
  - Frustration [Not Recovered/Not Resolved]
  - Poor quality sleep [Unknown]
  - Product quality issue [Unknown]
  - Memory impairment [Unknown]

NARRATIVE: CASE EVENT DATE: 20140924
